FAERS Safety Report 10018982 (Version 1)
Quarter: 2014Q1

REPORT INFORMATION
  Report Type: Spontaneous
  Country: JP (occurrence: JP)
  Receive Date: 20140318
  Receipt Date: 20140318
  Transmission Date: 20141002
  Serious: Yes (Hospitalization)
  Sender: FDA-Public Use
  Company Number: JP-GLAXOSMITHKLINE-B0976859A

PATIENT
  Age: 13 Year
  Sex: Male

DRUGS (3)
  1. RELENZA [Suspect]
     Indication: INFLUENZA
     Route: 055
     Dates: start: 20140310, end: 20140310
  2. MUCODYNE [Concomitant]
     Indication: RHINORRHOEA
     Dosage: 250MG THREE TIMES PER DAY
     Route: 048
     Dates: start: 20140310
  3. ASVERIN [Concomitant]
     Indication: COUGH
     Dosage: 20MG THREE TIMES PER DAY
     Route: 048
     Dates: start: 20140310

REACTIONS (8)
  - Loss of consciousness [Recovered/Resolved]
  - Syncope [Recovering/Resolving]
  - Fall [Unknown]
  - Contusion [Unknown]
  - Vomiting [Unknown]
  - Visual impairment [Unknown]
  - Cold sweat [Unknown]
  - Syncope [Recovering/Resolving]
